FAERS Safety Report 18647132 (Version 5)
Quarter: 2023Q4

REPORT INFORMATION
  Report Type: Spontaneous
  Country: CA (occurrence: CA)
  Receive Date: 20201221
  Receipt Date: 20231005
  Transmission Date: 20240109
  Serious: Yes (Hospitalization, Other)
  Sender: FDA-Public Use
  Company Number: CA-VALIDUS PHARMACEUTICALS LLC-CA-2020VAL001065

PATIENT

DRUGS (25)
  1. LASIX [Suspect]
     Active Substance: FUROSEMIDE
     Indication: Cardiac failure
     Dosage: 200 MG, QD,(120/80 MG AM/PM), CAPSULE HARD
     Route: 048
     Dates: start: 20200731, end: 20201022
  2. LASIX [Suspect]
     Active Substance: FUROSEMIDE
     Dosage: 120 MILLIGRAM, QD
     Route: 048
  3. PRALUENT [Suspect]
     Active Substance: ALIROCUMAB
     Indication: Product used for unknown indication
     Dosage: 75 MG, QOW
     Route: 058
     Dates: start: 20201103
  4. PRALUENT [Suspect]
     Active Substance: ALIROCUMAB
     Dosage: 150 MG, QOW
     Route: 058
  5. TAFAMIDIS MEGLUMINE [Suspect]
     Active Substance: TAFAMIDIS MEGLUMINE
     Indication: Cardiac amyloidosis
     Dosage: 61 MG, QD
     Route: 048
     Dates: start: 20190917
  6. ZAROXOLYN [Concomitant]
     Active Substance: METOLAZONE
     Indication: Cardiac failure
     Dosage: UNK
     Route: 065
  7. ZAROXOLYN [Concomitant]
     Active Substance: METOLAZONE
     Indication: Hypertension
  8. FLOMAX [Concomitant]
     Active Substance: TAMSULOSIN HYDROCHLORIDE
     Indication: Benign prostatic hyperplasia
     Dosage: UNK
     Route: 065
     Dates: start: 2017
  9. HYDRALAZINE [Concomitant]
     Active Substance: HYDRALAZINE HYDROCHLORIDE
     Indication: Cardiac failure
     Dosage: UNK
     Route: 065
     Dates: start: 20170914
  10. AMIODARONE [Concomitant]
     Active Substance: AMIODARONE
     Indication: Atrial fibrillation
     Dosage: UNK
     Route: 065
     Dates: start: 20170914
  11. ALLOPURINOL [Concomitant]
     Active Substance: ALLOPURINOL
     Indication: Chronic kidney disease
     Dosage: UNK
     Route: 065
     Dates: start: 20170914
  12. FINASTERIDE [Concomitant]
     Active Substance: FINASTERIDE
     Indication: Benign prostatic hyperplasia
     Dosage: UNK
     Route: 065
     Dates: start: 20170914
  13. WARFARIN [Concomitant]
     Active Substance: WARFARIN
     Indication: Atrial fibrillation
     Dosage: UNK
     Route: 065
  14. SPIRONOLACTONE [Concomitant]
     Active Substance: SPIRONOLACTONE
     Indication: Cardiac failure
     Dosage: UNK
     Route: 065
     Dates: start: 2017
  15. SPIRONOLACTONE [Concomitant]
     Active Substance: SPIRONOLACTONE
     Indication: Hypertension
  16. UREA [Concomitant]
     Active Substance: UREA
     Indication: Product used for unknown indication
     Dosage: UNK
     Route: 065
  17. APIXABAN [Concomitant]
     Active Substance: APIXABAN
     Indication: Product used for unknown indication
     Dosage: UNK
     Route: 065
  18. COENZYME Q10 [TOCOPHERYL ACETATE;UBIDECARENONE] [Concomitant]
     Indication: Product used for unknown indication
     Dosage: UNK
     Route: 065
  19. EMPAGLIFLOZIN\METFORMIN HYDROCHLORIDE [Concomitant]
     Active Substance: EMPAGLIFLOZIN\METFORMIN HYDROCHLORIDE
     Indication: Product used for unknown indication
     Dosage: UNK
     Route: 065
  20. ENTRESTO [Concomitant]
     Active Substance: SACUBITRIL\VALSARTAN
     Indication: Product used for unknown indication
     Route: 065
  21. METFORMIN [Concomitant]
     Active Substance: METFORMIN HYDROCHLORIDE
     Indication: Product used for unknown indication
     Route: 065
  22. METOPROLOL [Concomitant]
     Active Substance: METOPROLOL
     Indication: Product used for unknown indication
     Route: 065
  23. PANTOPRAZOLE [Concomitant]
     Active Substance: PANTOPRAZOLE
     Indication: Product used for unknown indication
     Dosage: UNK
     Route: 065
  24. ROSUVASTATIN [Concomitant]
     Active Substance: ROSUVASTATIN
     Indication: Product used for unknown indication
     Route: 065
  25. CHOLECALCIFEROL [Concomitant]
     Active Substance: CHOLECALCIFEROL
     Indication: Product used for unknown indication
     Route: 065

REACTIONS (6)
  - Cardiac failure [Recovered/Resolved]
  - Syncope [Recovered/Resolved]
  - Chronic kidney disease [Recovered/Resolved]
  - Dehydration [Recovered/Resolved]
  - Polyuria [Recovered/Resolved]
  - Acute kidney injury [Recovered/Resolved]

NARRATIVE: CASE EVENT DATE: 20201022
